FAERS Safety Report 17042048 (Version 1)
Quarter: 2019Q4

REPORT INFORMATION
  Report Type: Spontaneous
  Country: US (occurrence: US)
  Receive Date: 20191117
  Receipt Date: 20191117
  Transmission Date: 20200122
  Serious: Yes (Disabling)
  Sender: FDA-Public Use
  Company Number: None

PATIENT
  Age: 32 Year
  Sex: Female
  Weight: 83.91 kg

DRUGS (4)
  1. LORZAPEM [Concomitant]
  2. NEXPLANON [Suspect]
     Active Substance: ETONOGESTREL
  3. NEXPLANON [Concomitant]
     Active Substance: ETONOGESTREL
  4. SERTRALINE [Concomitant]
     Active Substance: SERTRALINE HYDROCHLORIDE

REACTIONS (4)
  - Implantation complication [None]
  - Pulmonary thrombosis [None]
  - Depression [None]
  - Weight increased [None]

NARRATIVE: CASE EVENT DATE: 20191001
